FAERS Safety Report 18595209 (Version 1)
Quarter: 2020Q4

REPORT INFORMATION
  Report Type: Spontaneous
  Country: US (occurrence: US)
  Receive Date: 20201209
  Receipt Date: 20201209
  Transmission Date: 20210114
  Serious: Yes (Hospitalization)
  Sender: FDA-Public Use
  Company Number: None

PATIENT
  Age: 86 Year
  Sex: Female
  Weight: 84.7 kg

DRUGS (11)
  1. METOPROLOL SUCCINATE. [Concomitant]
     Active Substance: METOPROLOL SUCCINATE
     Dates: start: 20200325
  2. PREDNISONE. [Concomitant]
     Active Substance: PREDNISONE
     Dates: start: 20180208
  3. TRAMADOL. [Concomitant]
     Active Substance: TRAMADOL
     Dates: start: 20200914
  4. APIXABAN [Concomitant]
     Active Substance: APIXABAN
     Dates: start: 20191105
  5. HYDROCHLOROTHIAZIDE. [Concomitant]
     Active Substance: HYDROCHLOROTHIAZIDE
     Dates: start: 20201013
  6. AMIODARONE [Concomitant]
     Active Substance: AMIODARONE
     Dates: start: 20191001
  7. TOBRAMYCIN-DEXAMETHASONE [Concomitant]
     Active Substance: DEXAMETHASONE\TOBRAMYCIN
     Dates: start: 20191123
  8. BAMLANIVIMAB. [Suspect]
     Active Substance: BAMLANIVIMAB
     Indication: COVID-19
     Dosage: ?          OTHER FREQUENCY:OTHER;?
     Route: 041
     Dates: start: 20201125, end: 20201125
  9. ACETAMINOPHEN. [Concomitant]
     Active Substance: ACETAMINOPHEN
     Dates: start: 20191022
  10. LISINOPRIL. [Concomitant]
     Active Substance: LISINOPRIL
     Dates: start: 20200923
  11. PRAVASTATIN. [Concomitant]
     Active Substance: PRAVASTATIN
     Dates: start: 20200928

REACTIONS (2)
  - Asthenia [None]
  - Therapeutic response unexpected [None]

NARRATIVE: CASE EVENT DATE: 20201201
